FAERS Safety Report 9277027 (Version 1)
Quarter: 2013Q2

REPORT INFORMATION
  Report Type: Spontaneous
  Country: DE (occurrence: None)
  Receive Date: 20130501
  Receipt Date: 20130501
  Transmission Date: 20140414
  Serious: Yes (Other)
  Sender: FDA-Public Use
  Company Number: GER/GER/13/0029203

PATIENT
  Age: 28 Year
  Sex: Female

DRUGS (5)
  1. ZIPRASIDONE [Suspect]
     Indication: PRODUCT USED FOR UNKNOWN INDICATION
     Route: 048
     Dates: start: 20121004, end: 20121007
  2. QUETIAPINE (QUETIAPINE) (QUETIAPINE) [Suspect]
     Indication: PRODUCT USED FOR UNKNOWN INDICATION
     Route: 048
     Dates: end: 20120926
  3. CHLORPROTHIXENE (CHLORPROTHIXENE) [Suspect]
     Indication: PRODUCT USED FOR UNKNOWN INDICATION
     Route: 048
     Dates: end: 20120927
  4. L-THYROXINE (LEVOTHYROXINE) [Concomitant]
  5. VALPROAT (VALPROATE SODIUM) [Concomitant]

REACTIONS (3)
  - Rhabdomyolysis [None]
  - Nephrolithiasis [None]
  - Hepatic steatosis [None]
